FAERS Safety Report 9759321 (Version 1)
Quarter: 2013Q4

REPORT INFORMATION
  Report Type: Spontaneous
  Country: US (occurrence: None)
  Receive Date: 20131216
  Receipt Date: 20131216
  Transmission Date: 20140711
  Serious: Yes (Other)
  Sender: FDA-Public Use
  Company Number: 163-21880-12040880(0)

PATIENT
  Sex: 0

DRUGS (2)
  1. REVLIMID (LENALIDOMIDE) (CAPSULES) [Suspect]
     Indication: CHRONIC LYMPHOCYTIC LEUKAEMIA
     Dosage: 10MG (9PTS) , 7.5MG (4PTS), 5MG(13PTS) , DAILY, PO? ? ? ? ? ?
  2. OFATUMUMAB [Suspect]
     Indication: CHRONIC LYMPHOCYTIC LEUKAEMIA
     Dosage: 300MG W 1; 1,000 MG W 2-4, WEEKLY FOR 4 WEEKS IV ?300MG WEEK 1, 1000MG WEEK 2 TO 4, IV ?MONTHY MONTH

REACTIONS (4)
  - Tumour flare [None]
  - Herpes zoster [None]
  - Toxoplasmosis [None]
  - Neutropenia [None]
